FAERS Safety Report 5234454-8 (Version None)
Quarter: 2007Q1

REPORT INFORMATION
  Report Type: 
  Country: None (occurrence: None)
  Receive Date: 20070209
  Receipt Date: 20070130
  Transmission Date: 20070707
  Serious: Yes (Other)
  Sender: FDA-Public Use
  Company Number: FR-GLAXOSMITHKLINE-B0453144A

PATIENT
  Age: 16 Year
  Sex: Female
  Weight: 47 kg

DRUGS (5)
  1. LAMOTRIGINE [Suspect]
     Route: 048
     Dates: start: 20060601
  2. TERCIAN [Concomitant]
     Indication: SEDATION
     Route: 048
     Dates: start: 20060101
  3. RISPERDAL [Concomitant]
     Route: 048
     Dates: start: 20060101
  4. RIVOTRIL [Concomitant]
     Route: 048
     Dates: start: 20060101
  5. LEPTICUR [Concomitant]
     Route: 048

REACTIONS (4)
  - BULLOUS IMPETIGO [None]
  - EPIDERMOLYSIS [None]
  - SKIN LESION [None]
  - THERMAL BURN [None]
